FAERS Safety Report 5192393-5 (Version None)
Quarter: 2006Q4

REPORT INFORMATION
  Report Type: 
  Country: None (occurrence: None)
  Receive Date: 20061227
  Receipt Date: 20061108
  Transmission Date: 20070319
  Serious: Yes (Hospitalization)
  Sender: FDA-Public Use
  Company Number: US-BOEHRINGER INGELHEIM PHARMACEUTICALS, INC.-2006-BP-13025BP

PATIENT
  Sex: Male

DRUGS (3)
  1. FLOMAX [Suspect]
     Indication: BENIGN PROSTATIC HYPERPLASIA
     Route: 048
  2. HYTRIN [Suspect]
     Indication: BENIGN PROSTATIC HYPERPLASIA
  3. PROSCAR [Concomitant]
     Indication: BENIGN PROSTATIC HYPERPLASIA

REACTIONS (2)
  - ANGINA PECTORIS [None]
  - BLOOD PRESSURE DECREASED [None]
